FAERS Safety Report 4415251-X (Version None)
Quarter: 2004Q3

REPORT INFORMATION
  Report Type: 
  Country: None (occurrence: None)
  Receive Date: 20040729
  Receipt Date: 20040721
  Transmission Date: 20050211
  Serious: Yes (Hospitalization)
  Sender: FDA-Public Use
  Company Number: 2004221897JP

PATIENT
  Sex: Female

DRUGS (1)
  1. MEDROXYPROGESTERONE ACETATE [Suspect]
     Indication: UTERINE CANCER
     Dosage: 600 MG, QD, ORAL
     Route: 048
     Dates: start: 20040614, end: 20040625

REACTIONS (3)
  - HERPES VIRUS INFECTION [None]
  - LABORATORY TEST INTERFERENCE [None]
  - STEVENS-JOHNSON SYNDROME [None]
